FAERS Safety Report 7638990-6 (Version None)
Quarter: 2011Q3

REPORT INFORMATION
  Report Type: 
  Country: None (occurrence: None)
  Receive Date: 20110727
  Receipt Date: 20110722
  Transmission Date: 20111222
  Serious: No
  Sender: FDA-Public Use
  Company Number: US-PFIZER INC-2011167293

PATIENT
  Sex: Female
  Weight: 88.435 kg

DRUGS (4)
  1. HYDROCHLOROTHIAZIDE [Concomitant]
     Dosage: 12 MG, UNK
  2. LOVASTATIN [Concomitant]
     Dosage: 20 MG, UNK
  3. LYRICA [Suspect]
     Indication: NERVE COMPRESSION
     Dosage: 50 MG, 2X/DAY
     Route: 048
     Dates: start: 20110701
  4. QUINAPRIL [Concomitant]
     Dosage: 10 MG, UNK

REACTIONS (5)
  - BACK PAIN [None]
  - ASTHENIA [None]
  - GAIT DISTURBANCE [None]
  - PAIN IN EXTREMITY [None]
  - PROCTALGIA [None]
